FAERS Safety Report 12268489 (Version 2)
Quarter: 2016Q2

REPORT INFORMATION
  Report Type: Spontaneous
  Country: US (occurrence: US)
  Receive Date: 20160414
  Receipt Date: 20160519
  Transmission Date: 20160815
  Serious: Yes (Death)
  Sender: FDA-Public Use
  Company Number: US-TAIHO ONCOLOGY INC-EU-2016-00677

PATIENT
  Age: 34 Year
  Sex: Male

DRUGS (6)
  1. LONSURF [Suspect]
     Active Substance: TIPIRACIL HYDROCHLORIDE\TRIFLURIDINE
     Indication: COLON CANCER
     Route: 048
     Dates: start: 20151125
  2. PANITUMUMAB [Concomitant]
     Active Substance: PANITUMUMAB
     Dosage: NI
  3. SUBSYS [Concomitant]
     Active Substance: FENTANYL
     Dosage: NI
  4. CEFTIN [Concomitant]
     Active Substance: CEFUROXIME AXETIL
     Dosage: NI
  5. FENTANYL. [Concomitant]
     Active Substance: FENTANYL
     Dosage: NI
  6. DILAUDID [Concomitant]
     Active Substance: HYDROMORPHONE HYDROCHLORIDE
     Dosage: NI

REACTIONS (1)
  - Disease progression [Fatal]

NARRATIVE: CASE EVENT DATE: 20160323
